FAERS Safety Report 5446771-7 (Version None)
Quarter: 2007Q3

REPORT INFORMATION
  Report Type: 
  Country: None (occurrence: None)
  Receive Date: 20070907
  Receipt Date: 20070828
  Transmission Date: 20080115
  Serious: Yes (Death)
  Sender: FDA-Public Use
  Company Number: FR-PFIZER INC-2007072042

PATIENT
  Sex: Male
  Weight: 90.5 kg

DRUGS (2)
  1. CADUET [Suspect]
  2. AMLODIPINE [Concomitant]

REACTIONS (1)
  - SUDDEN DEATH [None]
